FAERS Safety Report 7828979-6 (Version None)
Quarter: 2011Q4

REPORT INFORMATION
  Report Type: 
  Country: None (occurrence: None)
  Receive Date: 20111020
  Receipt Date: 20111003
  Transmission Date: 20120403
  Serious: Yes (Hospitalization)
  Sender: FDA-Public Use
  Company Number: IT-BAYER-2011-094588

PATIENT
  Age: 66 Year
  Sex: Male

DRUGS (6)
  1. ADALAT [Concomitant]
  2. AVODART [Concomitant]
  3. POTASSIUM CHLORIDE [Concomitant]
     Route: 048
  4. ATENOLOL [Concomitant]
     Indication: HYPERTENSION
  5. ACETYLSALICYLIC ACID SRT [Suspect]
     Indication: CARDIOVASCULAR EVENT PROPHYLAXIS
     Dosage: DAILY DOSE 100 MG
     Route: 048
     Dates: start: 20050101, end: 20110627
  6. GLICLAZIDE [Concomitant]
     Indication: TYPE 2 DIABETES MELLITUS

REACTIONS (2)
  - PEPTIC ULCER [None]
  - GASTRIC HAEMORRHAGE [None]
